FAERS Safety Report 23368146 (Version 5)
Quarter: 2024Q1

REPORT INFORMATION
  Report Type: Report from Study
  Country: US (occurrence: US)
  Receive Date: 20240105
  Receipt Date: 20240329
  Transmission Date: 20240410
  Serious: No
  Sender: FDA-Public Use
  Company Number: US-BRISTOL-MYERS SQUIBB COMPANY-2024-001579

PATIENT
  Age: 83 Year
  Sex: Female
  Weight: 53.07 kg

DRUGS (2)
  1. POMALYST [Suspect]
     Active Substance: POMALIDOMIDE
     Indication: Plasma cell myeloma
     Dosage: FREQUENCY: 21
  2. POMALYST [Suspect]
     Active Substance: POMALIDOMIDE
     Dosage: FREQUENCY: DAILY ON DAYS 1 THROUGH 14, THEN 7 DAYS OFF
     Route: 048
     Dates: start: 20240101

REACTIONS (5)
  - Product dispensing error [Unknown]
  - Off label use [Unknown]
  - Dizziness [Recovered/Resolved]
  - COVID-19 [Recovering/Resolving]
  - Cancer pain [Unknown]

NARRATIVE: CASE EVENT DATE: 20240101
